FAERS Safety Report 12049878 (Version 1)
Quarter: 2016Q1

REPORT INFORMATION
  Report Type: Spontaneous
  Country: US (occurrence: None)
  Receive Date: 20160208
  Receipt Date: 20160208
  Transmission Date: 20160526
  Serious: Yes (Other)
  Sender: FDA-Public Use
  Company Number: None

PATIENT
  Age: 53 Year
  Sex: Female
  Weight: 81.65 kg

DRUGS (7)
  1. VITAMIN D3 [Concomitant]
     Active Substance: CHOLECALCIFEROL
  2. LEVOTHYROXINE. [Concomitant]
     Active Substance: LEVOTHYROXINE
  3. FISH OIL [Concomitant]
     Active Substance: FISH OIL
  4. XANAX [Concomitant]
     Active Substance: ALPRAZOLAM
  5. SERTRALINE [Concomitant]
     Active Substance: SERTRALINE HYDROCHLORIDE
  6. TRAMADOL. [Concomitant]
     Active Substance: TRAMADOL
  7. LEVOCETIRIZINE 5MG [Suspect]
     Active Substance: LEVOCETIRIZINE
     Indication: IDIOPATHIC URTICARIA
     Route: 048
     Dates: start: 20160203, end: 20160204

REACTIONS (6)
  - Agitation [None]
  - Balance disorder [None]
  - Anger [None]
  - Fatigue [None]
  - Headache [None]
  - Myalgia [None]

NARRATIVE: CASE EVENT DATE: 20160203
